FAERS Safety Report 9325103 (Version 1)
Quarter: 2013Q2

REPORT INFORMATION
  Report Type: Spontaneous
  Country: CN (occurrence: CN)
  Receive Date: 20130603
  Receipt Date: 20130603
  Transmission Date: 20140414
  Serious: Yes (Other)
  Sender: FDA-Public Use
  Company Number: CN-B.I. PHARMACEUTICALS,INC./RIDGEFIELD-2013-BI-15125CS

PATIENT
  Age: 62 Year
  Sex: Male

DRUGS (1)
  1. ATROVENT [Suspect]
     Indication: BRONCHITIS CHRONIC
     Route: 055
     Dates: start: 2003, end: 20130524

REACTIONS (3)
  - Cerebral infarction [Not Recovered/Not Resolved]
  - Dizziness [Not Recovered/Not Resolved]
  - Musculoskeletal stiffness [Not Recovered/Not Resolved]
